FAERS Safety Report 21931326 (Version 1)
Quarter: 2023Q1

REPORT INFORMATION
  Report Type: Spontaneous
  Country: TR (occurrence: TR)
  Receive Date: 20230131
  Receipt Date: 20230131
  Transmission Date: 20230418
  Serious: Yes (Life-Threatening, Other)
  Sender: FDA-Public Use
  Company Number: TR-GLAXOSMITHKLINE-TR2023EME013328

PATIENT

DRUGS (3)
  1. NUCALA [Suspect]
     Active Substance: MEPOLIZUMAB
     Indication: Asthma
     Dosage: 100 MG
     Route: 058
     Dates: start: 20230127
  2. PREDNISOLONE [Suspect]
     Active Substance: PREDNISOLONE
     Indication: Blood pressure decreased
     Dosage: 20 MG
     Route: 042
  3. PHENIRAMINE [Suspect]
     Active Substance: PHENIRAMINE
     Indication: Blood pressure decreased
     Dosage: UNK, 45.5 MG/2 ML
     Route: 042

REACTIONS (5)
  - Anaphylactic reaction [Unknown]
  - Abdominal pain [Unknown]
  - Nausea [Unknown]
  - Palatal oedema [Unknown]
  - Blood pressure decreased [Unknown]

NARRATIVE: CASE EVENT DATE: 20230127
